FAERS Safety Report 11976640 (Version 2)
Quarter: 2016Q1

REPORT INFORMATION
  Report Type: Spontaneous
  Country: US (occurrence: US)
  Receive Date: 20160129
  Receipt Date: 20160315
  Transmission Date: 20160526
  Serious: No
  Sender: FDA-Public Use
  Company Number: US-009507513-1601USA007706

PATIENT
  Age: 33 Year
  Sex: Male
  Weight: 120.18 kg

DRUGS (3)
  1. BELSOMRA [Suspect]
     Active Substance: SUVOREXANT
     Indication: INSOMNIA
     Dosage: ONE HALF TABLET OF 15 MG AT NIGHT
     Route: 048
     Dates: start: 20160116, end: 20160117
  2. BELSOMRA [Suspect]
     Active Substance: SUVOREXANT
     Dosage: 1 FULL 15 MG TABLET, AT NIGHT
     Dates: start: 20160118
  3. SYNTHROID [Concomitant]
     Active Substance: LEVOTHYROXINE SODIUM
     Indication: HYPOTHYROIDISM
     Dosage: 100 MICROGRAM, QD
     Route: 048
     Dates: start: 201208

REACTIONS (3)
  - Wrong technique in product usage process [Unknown]
  - Sleep disorder [Recovered/Resolved]
  - Drug ineffective [Unknown]

NARRATIVE: CASE EVENT DATE: 201601
